FAERS Safety Report 8980690 (Version 2)
Quarter: 2013Q1

REPORT INFORMATION
  Report Type: Spontaneous
  Country: FR (occurrence: FR)
  Receive Date: 20121221
  Receipt Date: 20130215
  Transmission Date: 20140127
  Serious: Yes (Hospitalization)
  Sender: FDA-Public Use
  Company Number: FR-ELI_LILLY_AND_COMPANY-FR201212004965

PATIENT
  Age: 66 Year
  Sex: Female

DRUGS (2)
  1. FORSTEO [Suspect]
     Indication: OSTEOPOROSIS
     Dosage: 20 UG, QD
     Route: 058
     Dates: start: 20120709, end: 20120929
  2. FORSTEO [Suspect]
     Dosage: 20 UG, QD
     Route: 058
     Dates: start: 20121019

REACTIONS (5)
  - Fall [Recovered/Resolved]
  - Injury [Recovered/Resolved]
  - Acute pulmonary oedema [Recovered/Resolved]
  - Tachyarrhythmia [Recovered/Resolved]
  - Fall [Recovered/Resolved]
